FAERS Safety Report 11131958 (Version 3)
Quarter: 2016Q2

REPORT INFORMATION
  Report Type: Report from Study
  Country: TH (occurrence: TH)
  Receive Date: 20150522
  Receipt Date: 20160616
  Transmission Date: 20160815
  Serious: Yes (Life-Threatening, Hospitalization, Disabling, Other)
  Sender: FDA-Public Use
  Company Number: TH-GLAXOSMITHKLINE-TH2015069208

PATIENT
  Age: 55 Year
  Sex: Female
  Weight: 75 kg

DRUGS (15)
  1. OMEPRAZOLE. [Concomitant]
     Active Substance: OMEPRAZOLE
     Indication: PROPHYLAXIS
     Dosage: 20 MG, QD
     Route: 048
     Dates: start: 20140506
  2. PREDNISOLONE. [Concomitant]
     Active Substance: PREDNISOLONE
     Indication: SYSTEMIC LUPUS ERYTHEMATOSUS
     Dosage: 20 MG, BID
     Route: 048
     Dates: start: 20150203
  3. GLIPIZIDE. [Concomitant]
     Active Substance: GLIPIZIDE
     Indication: DIABETES MELLITUS
     Dosage: 10 MG, BID
     Route: 048
     Dates: start: 20140422
  4. IBUPROFEN. [Concomitant]
     Active Substance: IBUPROFEN
     Indication: SYSTEMIC LUPUS ERYTHEMATOSUS
     Dosage: 100 MG, PRN
     Route: 048
     Dates: start: 20130530
  5. CHLOROQUINE. [Concomitant]
     Active Substance: CHLOROQUINE
     Indication: SYSTEMIC LUPUS ERYTHEMATOSUS
     Dosage: 250 MG, ONCE A MONTH
     Route: 048
     Dates: start: 20130530
  6. LOSARTAN. [Concomitant]
     Active Substance: LOSARTAN
     Indication: HYPERTENSION
     Dosage: 100 ML, QD
     Route: 048
     Dates: start: 20111019
  7. CARDURA XL [Concomitant]
     Active Substance: DOXAZOSIN MESYLATE
     Indication: HYPERTENSION
     Dosage: 4 ML, QD
     Dates: start: 20101223
  8. ATENOLOL. [Concomitant]
     Active Substance: ATENOLOL
     Indication: HYPERTENSION
     Dosage: 100 ML, QD
     Route: 048
     Dates: start: 20111019
  9. BELIMUMAB [Suspect]
     Active Substance: BELIMUMAB
     Indication: SYSTEMIC LUPUS ERYTHEMATOSUS
     Dosage: UNK, CYC
     Route: 042
     Dates: start: 20140527
  10. HUMULIN NOS [Concomitant]
     Active Substance: INSULIN HUMAN
     Indication: DIABETES MELLITUS
     Dosage: 28 IU, BID
     Route: 023
     Dates: start: 20151212
  11. VITAMIN C [Concomitant]
     Active Substance: ASCORBIC ACID
     Indication: SUPPLEMENTATION THERAPY
     Dosage: 500 MG, 1D
     Route: 048
     Dates: start: 20070621
  12. MANIDIPINE [Concomitant]
     Active Substance: MANIDIPINE
     Indication: HYPERTENSION
     Dosage: 10 MG, BID
     Route: 048
     Dates: start: 20140422
  13. CHLORAMBUCIL [Concomitant]
     Active Substance: CHLORAMBUCIL
     Indication: SYSTEMIC LUPUS ERYTHEMATOSUS
     Dosage: 2 MG, BID
     Route: 048
     Dates: start: 20150303
  14. ALUM MILK [Concomitant]
     Indication: PROPHYLAXIS
     Dosage: 15 ML, QID
     Route: 048
     Dates: start: 20120301
  15. FUROSEMIDE. [Concomitant]
     Active Substance: FUROSEMIDE
     Indication: OEDEMA
     Dosage: 10 MG, QD
     Route: 048
     Dates: start: 20150303

REACTIONS (1)
  - Cellulitis [Recovered/Resolved]

NARRATIVE: CASE EVENT DATE: 20150425
